FAERS Safety Report 19032255 (Version 1)
Quarter: 2021Q1

REPORT INFORMATION
  Report Type: Spontaneous
  Country: US (occurrence: US)
  Receive Date: 20210319
  Receipt Date: 20210319
  Transmission Date: 20210420
  Serious: No
  Sender: FDA-Public Use
  Company Number: US-TAKEDA-2021TUS015596

PATIENT
  Sex: Female
  Weight: 42.63 kg

DRUGS (19)
  1. ACETAMINOPHEN. [Concomitant]
     Active Substance: ACETAMINOPHEN
  2. DIPHENHYDRAMINE. [Concomitant]
     Active Substance: DIPHENHYDRAMINE
  3. D3 +K2 [Concomitant]
  4. PROBIOTICS NOS [Concomitant]
     Active Substance: PROBIOTICS NOS
  5. FISH OIL [Concomitant]
     Active Substance: FISH OIL
  6. ASPIR LOW [Concomitant]
     Active Substance: ASPIRIN
  7. VITAMIN D3 [Concomitant]
     Active Substance: CHOLECALCIFEROL
  8. VITAMIN B COMPLEX [Concomitant]
     Active Substance: CYANOCOBALAMIN\DEXPANTHENOL\NIACINAMIDE\PYRIDOXINE HYDROCHLORIDE\RIBOFLAVIN 5^-PHOSPHATE SODIUM\THIAMINE HYDROCHLORIDE\VITAMIN B COMPLEX
  9. STRONTIUM [Concomitant]
     Active Substance: STRONTIUM
  10. GAMMAGARD LIQUID [Suspect]
     Active Substance: HUMAN IMMUNOGLOBULIN G
     Indication: PRODUCT USED FOR UNKNOWN INDICATION
  11. UBIQUINOL [Concomitant]
     Active Substance: UBIQUINOL
  12. GAMMAGARD LIQUID [Suspect]
     Active Substance: HUMAN IMMUNOGLOBULIN G
     Indication: IMMUNODEFICIENCY COMMON VARIABLE
  13. SODIUM CHLORIDE. [Concomitant]
     Active Substance: SODIUM CHLORIDE
  14. EPINEPHRINE. [Concomitant]
     Active Substance: EPINEPHRINE
  15. ESTER C [ASCORBIC ACID] [Concomitant]
     Active Substance: ASCORBIC ACID
  16. GAMMAGARD LIQUID [Suspect]
     Active Substance: HUMAN IMMUNOGLOBULIN G
     Indication: SELECTIVE IGG SUBCLASS DEFICIENCY
     Dosage: 20 GRAM, Q4WEEKS
     Route: 042
     Dates: start: 20210220
  17. LIDOCAINE. [Concomitant]
     Active Substance: LIDOCAINE
  18. ZINC + VITAMIN C [Concomitant]
     Active Substance: ASCORBIC ACID\ZINC
  19. BIOTIN [Concomitant]
     Active Substance: BIOTIN

REACTIONS (2)
  - Fatigue [Not Recovered/Not Resolved]
  - Aphonia [Not Recovered/Not Resolved]
